FAERS Safety Report 7193493-0 (Version None)
Quarter: 2010Q4

REPORT INFORMATION
  Report Type: 
  Country: None (occurrence: None)
  Receive Date: 20101223
  Receipt Date: 20101208
  Transmission Date: 20110411
  Serious: Yes (Death)
  Sender: FDA-Public Use
  Company Number: JP-BAYER-201015355BYL

PATIENT
  Sex: Male

DRUGS (3)
  1. ASPIRIN [Suspect]
     Indication: CORONARY ARTERY BYPASS
     Dosage: UNK
     Route: 048
     Dates: start: 20081215, end: 20081228
  2. TICLOPIDINE HCL [Suspect]
     Indication: CORONARY ARTERY BYPASS
     Dosage: UNK UNK, UNK
     Route: 048
     Dates: start: 20081215, end: 20081228
  3. HEPARIN SODIUM [Suspect]
     Indication: PRODUCT USED FOR UNKNOWN INDICATION
     Dosage: UNK UNK, UNK
     Route: 041
     Dates: start: 20081225

REACTIONS (1)
  - CARDIAC TAMPONADE [None]
